FAERS Safety Report 25994039 (Version 1)
Quarter: 2025Q4

REPORT INFORMATION
  Report Type: Spontaneous
  Country: CN (occurrence: CN)
  Receive Date: 20251104
  Receipt Date: 20251104
  Transmission Date: 20260117
  Serious: Yes (Other)
  Sender: GE HEALTHCARE
  Company Number: CN-GE HEALTHCARE-2025CSU015194

PATIENT
  Sex: Female

DRUGS (1)
  1. VISIPAQUE [Suspect]
     Active Substance: IODIXANOL
     Indication: Angiogram cerebral
     Dosage: UNK, TOTAL
     Route: 065
     Dates: start: 20251027, end: 20251027

REACTIONS (7)
  - Oculogyric crisis [Recovering/Resolving]
  - Cerebral infarction [Recovering/Resolving]
  - Contrast encephalopathy [Recovering/Resolving]
  - Eyelid ptosis [Recovering/Resolving]
  - Pupillary reflex impaired [Recovering/Resolving]
  - Somnolence [Recovering/Resolving]
  - Dysarthria [Recovering/Resolving]

NARRATIVE: CASE EVENT DATE: 20251027
